FAERS Safety Report 14519767 (Version 1)
Quarter: 2018Q1

REPORT INFORMATION
  Report Type: Spontaneous
  Country: DE (occurrence: DE)
  Receive Date: 20180212
  Receipt Date: 20180212
  Transmission Date: 20180509
  Serious: No
  Sender: FDA-Public Use
  Company Number: DE-UCBSA-2018004577

PATIENT
  Age: 17 Year
  Sex: Female
  Weight: 58 kg

DRUGS (5)
  1. LAMOTRIGINE. [Interacting]
     Active Substance: LAMOTRIGINE
     Dosage: 50 MG, DAILY
  2. VALPROATE SODIUM. [Interacting]
     Active Substance: VALPROATE SODIUM
     Indication: PRODUCT USED FOR UNKNOWN INDICATION
     Dosage: 300-0-450, 2 TIMES DAILY
     Route: 048
  3. VALPROATE [Interacting]
     Active Substance: VALPROIC ACID
     Indication: PRODUCT USED FOR UNKNOWN INDICATION
     Dosage: 10.7 MG/KG DAILY
     Dates: start: 201701, end: 201705
  4. LAMOTRIGINE. [Interacting]
     Active Substance: LAMOTRIGINE
     Indication: PRODUCT USED FOR UNKNOWN INDICATION
     Dosage: 1 MG/KG DAILY
     Route: 048
     Dates: start: 201701, end: 201705
  5. LEVETIRACETAM. [Suspect]
     Active Substance: LEVETIRACETAM
     Indication: PRODUCT USED FOR UNKNOWN INDICATION
     Dosage: 900 MG, DAILY

REACTIONS (7)
  - Drug interaction [Recovered/Resolved]
  - Decreased appetite [Recovered/Resolved]
  - Thrombocytopenia [Recovered/Resolved]
  - Alopecia [Recovered/Resolved]
  - Fatigue [Recovered/Resolved]
  - Prothrombin time prolonged [Recovered/Resolved]
  - Carnitine deficiency [Recovered/Resolved]

NARRATIVE: CASE EVENT DATE: 2017
